FAERS Safety Report 8787953 (Version 2)
Quarter: 2015Q2

REPORT INFORMATION
  Report Type: Report from Study
  Country: US (occurrence: US)
  Receive Date: 20120914
  Receipt Date: 20150401
  Transmission Date: 20150821
  Serious: Yes (Death)
  Sender: FDA-Public Use
  Company Number: US-ROCHE-1128077

PATIENT
  Sex: Female

DRUGS (24)
  1. FASLODEX [Concomitant]
     Active Substance: FULVESTRANT
  2. COLACE [Concomitant]
     Active Substance: DOCUSATE SODIUM
  3. PREDNISONE. [Concomitant]
     Active Substance: PREDNISONE
  4. FENTANYL. [Concomitant]
     Active Substance: FENTANYL
     Route: 065
  5. CARBOPLATIN. [Concomitant]
     Active Substance: CARBOPLATIN
  6. TAXOTERE [Concomitant]
     Active Substance: DOCETAXEL
     Route: 042
  7. COMPAZINE [Concomitant]
     Active Substance: PROCHLORPERAZINE MALEATE
  8. PEPCID [Concomitant]
     Active Substance: FAMOTIDINE
  9. ATIVAN [Concomitant]
     Active Substance: LORAZEPAM
     Route: 047
  10. ZOFRAN [Concomitant]
     Active Substance: ONDANSETRON HYDROCHLORIDE
     Route: 042
  11. NEULASTA [Concomitant]
     Active Substance: PEGFILGRASTIM
     Route: 065
  12. DECADRON [Concomitant]
     Active Substance: DEXAMETHASONE
     Route: 042
  13. TYLENOL [Concomitant]
     Active Substance: ACETAMINOPHEN
     Route: 042
  14. ARANESP [Concomitant]
     Active Substance: DARBEPOETIN ALFA
     Route: 058
  15. OXYCODONE [Concomitant]
     Active Substance: OXYCODONE
  16. XANAX [Concomitant]
     Active Substance: ALPRAZOLAM
  17. BENADRYL [Concomitant]
     Active Substance: DIPHENHYDRAMINE HYDROCHLORIDE
     Route: 065
  18. AVASTIN [Suspect]
     Active Substance: BEVACIZUMAB
     Indication: METASTASES TO LIVER
  19. CYMBALTA [Concomitant]
     Active Substance: DULOXETINE HYDROCHLORIDE
  20. CALCITONIN [Concomitant]
     Active Substance: CALCITONIN
  21. ABRAXANE [Concomitant]
     Active Substance: PACLITAXEL
  22. AVASTIN [Suspect]
     Active Substance: BEVACIZUMAB
     Indication: BREAST CANCER
     Route: 042
     Dates: start: 20090305
  23. AVASTIN [Suspect]
     Active Substance: BEVACIZUMAB
     Indication: BONE CANCER
  24. AREDIA [Concomitant]
     Active Substance: PAMIDRONATE DISODIUM

REACTIONS (15)
  - Purpura [Unknown]
  - Hypoaesthesia [Unknown]
  - Peripheral swelling [Unknown]
  - Pain [Unknown]
  - Urinary tract infection [Recovering/Resolving]
  - Gait disturbance [Unknown]
  - Hypoacusis [Unknown]
  - Paraesthesia [Unknown]
  - Dyspnoea [Recovered/Resolved]
  - Death [Fatal]
  - Fatigue [Unknown]
  - Oedema peripheral [Unknown]
  - Nausea [Unknown]
  - Swelling [Unknown]
  - Musculoskeletal chest pain [Unknown]
